FAERS Safety Report 8193005-9 (Version None)
Quarter: 2012Q1

REPORT INFORMATION
  Report Type: 
  Country: None (occurrence: None)
  Receive Date: 20120308
  Receipt Date: 20120302
  Transmission Date: 20120608
  Serious: Yes (Life-Threatening, Hospitalization, Other)
  Sender: FDA-Public Use
  Company Number: US-AMGEN-USASP2012004611

PATIENT
  Age: 55 Year
  Sex: Female

DRUGS (4)
  1. EPOGEN [Suspect]
     Indication: RENAL FAILURE CHRONIC
     Dosage: 5500 IU, 3 TIMES/WK
     Dates: start: 20120121
  2. EPOGEN [Suspect]
     Dosage: 5500 IU, 3 TIMES/WK
     Dates: start: 20120121
  3. EPOGEN [Suspect]
     Dosage: 4400 IU, 3 TIMES/WK
  4. EPOGEN [Suspect]
     Dosage: 3300 IU, 3 TIMES/WK
     Dates: start: 20111229

REACTIONS (11)
  - PULSE ABNORMAL [None]
  - CHEST PAIN [None]
  - VOMITING [None]
  - SNEEZING [None]
  - PRURITUS [None]
  - NAUSEA [None]
  - CARDIO-RESPIRATORY ARREST [None]
  - BLOOD PRESSURE ABNORMAL [None]
  - PILOERECTION [None]
  - HYPERSENSITIVITY [None]
  - DYSPNOEA [None]
